FAERS Safety Report 4489443-8 (Version None)
Quarter: 2004Q4

REPORT INFORMATION
  Report Type: 
  Country: None (occurrence: None)
  Receive Date: 20041026
  Receipt Date: 20041011
  Transmission Date: 20050328
  Serious: Yes (Other)
  Sender: FDA-Public Use
  Company Number: US_0410106511

PATIENT
  Age: 16 Year
  Sex: Female

DRUGS (4)
  1. VINCRISTINE SULFATE [Suspect]
     Indication: HAEMANGIOPERICYTOMA
  2. IFOSFAMIDE [Concomitant]
  3. ACTINOMYCIN D [Concomitant]
  4. RADIATION THERAPY [Concomitant]

REACTIONS (2)
  - BONE MARROW DEPRESSION [None]
  - NEPHROPATHY TOXIC [None]
